FAERS Safety Report 9637931 (Version 2)
Quarter: 2013Q4

REPORT INFORMATION
  Report Type: Spontaneous
  Country: NO (occurrence: NO)
  Receive Date: 20131022
  Receipt Date: 20131212
  Transmission Date: 20140711
  Serious: Yes (Other)
  Sender: FDA-Public Use
  Company Number: NO-WATSON-2013-19002

PATIENT
  Sex: Male

DRUGS (7)
  1. MIDAZOLAM (UNKNOWN) [Suspect]
     Indication: SEDATIVE THERAPY
     Dosage: FROM DAY 5 POST OP: 6-10 MG/H
     Route: 065
  2. FENTANYL (UNKNOWN) [Suspect]
     Indication: SEDATIVE THERAPY
     Dosage: 50 MCG/H
     Route: 065
  3. PROPOFOL (UNKNOWN) [Suspect]
     Indication: SEDATION
     Dosage: UNK
     Route: 065
  4. DEXDOR [Suspect]
     Indication: SEDATION
     Dosage: 0.7 MG/KG/H DECREASED TO 0.3 MG/KG/H; 0.2 TO 0.7 MG THROUGHOUT THE DAY, DAY 5 POST OP:1.4 MG/KG/H
     Route: 065
  5. SOBRIL [Suspect]
     Indication: PRODUCT USED FOR UNKNOWN INDICATION
     Dosage: 10 TO 15 MG WHEN NEEDED
     Route: 065
  6. HALDOL /00027401/ [Suspect]
     Indication: PRODUCT USED FOR UNKNOWN INDICATION
     Dosage: DAY 3 POSTOP: 2,5 MG IV, DAY 5 POST OP: 4 X 2,5 MG
     Route: 042
  7. KETORAX [Suspect]
     Indication: PRODUCT USED FOR UNKNOWN INDICATION
     Dosage: 1-2 MG , IF NEEDED
     Route: 042

REACTIONS (3)
  - Respiratory arrest [Recovering/Resolving]
  - Restlessness [Recovering/Resolving]
  - Bradycardia [Recovering/Resolving]
